FAERS Safety Report 8619965-7 (Version None)
Quarter: 2012Q3

REPORT INFORMATION
  Report Type: 
  Country: None (occurrence: None)
  Receive Date: 20120824
  Receipt Date: 20120815
  Transmission Date: 20120928
  Serious: Yes (Hospitalization, Other)
  Sender: FDA-Public Use
  Company Number: US-ELI_LILLY_AND_COMPANY-US201208005005

PATIENT
  Age: 50 Year
  Sex: Female

DRUGS (9)
  1. CLONAZEPAM [Concomitant]
  2. NEURONTIN [Concomitant]
  3. MULTIVITAMIN [Concomitant]
  4. SYNTHROID [Concomitant]
  5. LONOX [Concomitant]
  6. CYMBALTA [Suspect]
     Indication: DEPRESSION
     Dosage: 90 MG, QD
  7. LEXAPRO [Concomitant]
  8. VITAMIN D [Concomitant]
  9. LORTAB [Concomitant]

REACTIONS (4)
  - MESOTHELIOMA MALIGNANT [None]
  - MALABSORPTION [None]
  - ANXIETY [None]
  - DEPRESSION [None]
